APPROVED DRUG PRODUCT: SUBLIMAZE PRESERVATIVE FREE
Active Ingredient: FENTANYL CITRATE
Strength: EQ 0.05MG BASE/ML
Dosage Form/Route: INJECTABLE;INJECTION
Application: N016619 | Product #001 | TE Code: AP
Applicant: RISING PHARMA HOLDINGS INC
Approved: Approved Prior to Jan 1, 1982 | RLD: Yes | RS: Yes | Type: RX